FAERS Safety Report 5630699-3 (Version None)
Quarter: 2008Q1

REPORT INFORMATION
  Report Type: 
  Country: None (occurrence: None)
  Receive Date: 20080219
  Receipt Date: 20080211
  Transmission Date: 20080703
  Serious: Yes (Other)
  Sender: FDA-Public Use
  Company Number: US-ELI_LILLY_AND_COMPANY-US200802002234

PATIENT
  Sex: Female

DRUGS (2)
  1. HUMALOG [Suspect]
  2. PREDNISONE TAB [Concomitant]
     Dates: start: 20070722

REACTIONS (5)
  - ABDOMINAL DISTENSION [None]
  - BLOOD GLUCOSE INCREASED [None]
  - RENAL TRANSPLANT [None]
  - SWELLING FACE [None]
  - WEIGHT INCREASED [None]
